FAERS Safety Report 6000757-2 (Version None)
Quarter: 2008Q4

REPORT INFORMATION
  Report Type: 
  Country: None (occurrence: None)
  Receive Date: 20081211
  Receipt Date: 20081126
  Transmission Date: 20090506
  Serious: Yes (Other)
  Sender: FDA-Public Use
  Company Number: 2008S1000539

PATIENT
  Age: 49 Year
  Sex: Female

DRUGS (2)
  1. ACITRETIN [Suspect]
     Indication: PROPHYLAXIS
     Dosage: 10 MG; QD; PO, ; PO
     Route: 048
     Dates: start: 19950101, end: 19970101
  2. ACITRETIN [Suspect]
     Indication: PROPHYLAXIS
     Dosage: 10 MG; QD; PO, ; PO
     Route: 048
     Dates: start: 19970101

REACTIONS (7)
  - ACANTHOMA [None]
  - ACTINIC KERATOSIS [None]
  - COLONIC POLYP [None]
  - CYST [None]
  - HEPATIC ENZYME INCREASED [None]
  - OFF LABEL USE [None]
  - SQUAMOUS CELL CARCINOMA [None]
